FAERS Safety Report 11375734 (Version 1)
Quarter: 2015Q3

REPORT INFORMATION
  Report Type: Spontaneous
  Country: US (occurrence: US)
  Receive Date: 20150813
  Receipt Date: 20150813
  Transmission Date: 20151125
  Serious: Yes (Other)
  Sender: FDA-Public Use
  Company Number: US-GLAXOSMITHKLINE-US2015GSK113961

PATIENT
  Sex: Female

DRUGS (1)
  1. ADVAIR DISKUS [Suspect]
     Active Substance: FLUTICASONE PROPIONATE\SALMETEROL XINAFOATE
     Indication: ASTHMA
     Dosage: UNK, U
     Route: 055

REACTIONS (4)
  - Pneumonia [Unknown]
  - Dyspnoea [Unknown]
  - Surgery [Unknown]
  - Toe operation [Unknown]

NARRATIVE: CASE EVENT DATE: 201502
